FAERS Safety Report 6379166-2 (Version None)
Quarter: 2009Q3

REPORT INFORMATION
  Report Type: 
  Country: None (occurrence: None)
  Receive Date: 20090928
  Receipt Date: 20090826
  Transmission Date: 20100115
  Serious: No
  Sender: FDA-Public Use
  Company Number: US-BAYER-200931174NA

PATIENT
  Age: 40 Year
  Sex: Male
  Weight: 104 kg

DRUGS (2)
  1. ULTRAVIST 300 [Suspect]
     Indication: COMPUTERISED TOMOGRAM ABDOMEN
     Dosage: TOTAL DAILY DOSE: 150 ML  UNIT DOSE: 200 ML
     Route: 042
     Dates: start: 20090826, end: 20090826
  2. GASTRO [Concomitant]
     Route: 048
     Dates: start: 20090826, end: 20090826

REACTIONS (4)
  - CHILLS [None]
  - ERYTHEMA [None]
  - PRURITUS [None]
  - URTICARIA [None]
